FAERS Safety Report 8540915-6 (Version None)
Quarter: 2012Q3

REPORT INFORMATION
  Report Type: 
  Country: None (occurrence: None)
  Receive Date: 20120726
  Receipt Date: 20120717
  Transmission Date: 20120928
  Serious: No
  Sender: FDA-Public Use
  Company Number: US-PFIZER INC-2012172701

PATIENT
  Sex: Female
  Weight: 49 kg

DRUGS (3)
  1. PRISTIQ [Suspect]
     Dosage: CUTTING THE TABLETS OF DESVENLAFAXINE 50 MG INTO HALF DAILY
     Dates: start: 20120601
  2. SENNA [Concomitant]
     Indication: CONSTIPATION
     Dosage: 2 OR 3 PILLS ONCE OR TWICE DAILY AS NEEDED
     Route: 048
  3. PRISTIQ [Suspect]
     Indication: ANXIETY
     Dosage: 50 MG, 1X/DAY
     Route: 048
     Dates: start: 20120601, end: 20120601

REACTIONS (7)
  - ARTHRALGIA [None]
  - CONSTIPATION [None]
  - DRUG INEFFECTIVE [None]
  - IRRITABILITY [None]
  - HYPERHIDROSIS [None]
  - JOINT SWELLING [None]
  - LIBIDO DECREASED [None]
